FAERS Safety Report 7226682-7 (Version None)
Quarter: 2011Q1

REPORT INFORMATION
  Report Type: 
  Country: None (occurrence: None)
  Receive Date: 20110114
  Receipt Date: 20110112
  Transmission Date: 20110831
  Serious: Yes (Other)
  Sender: FDA-Public Use
  Company Number: FR-BRISTOL-MYERS SQUIBB COMPANY-15388853

PATIENT
  Age: 70 Year
  Sex: Female

DRUGS (4)
  1. ELISOR TABS 20 MG [Suspect]
     Indication: HYPERCHOLESTEROLAEMIA
     Dosage: 1 TABLET/DAY. DOSE REDUCED ON 10NOV10-HALF TABLET/DAY FROM 8SEP2010
     Route: 048
     Dates: start: 20020101
  2. ALDACTONE [Concomitant]
     Indication: HYPERTENSION
     Dosage: TABLET.
     Dates: start: 20020101
  3. AVLOCARDYL [Concomitant]
     Indication: TREMOR
     Dosage: TABLET
     Dates: start: 20091201
  4. AVLOCARDYL [Concomitant]
     Indication: HYPERTENSION
     Dosage: TABLET
     Dates: start: 20091201

REACTIONS (1)
  - TENDON DISORDER [None]
